FAERS Safety Report 5836740-7 (Version None)
Quarter: 2008Q3

REPORT INFORMATION
  Report Type: 
  Country: None (occurrence: None)
  Receive Date: 20080806
  Receipt Date: 20080806
  Transmission Date: 20090109
  Serious: Yes (Other)
  Sender: FDA-Public Use
  Company Number: None

PATIENT
  Age: 46 Year
  Sex: Female
  Weight: 72.5755 kg

DRUGS (1)
  1. CYMBALTA [Suspect]
     Indication: DEPRESSION
     Dosage: ONE 60MG CAPSULE DAILY, MONTHS
     Dates: start: 20080201, end: 20080805

REACTIONS (11)
  - CONSTIPATION [None]
  - DIZZINESS [None]
  - DRUG WITHDRAWAL SYNDROME [None]
  - ECONOMIC PROBLEM [None]
  - HEADACHE [None]
  - HYPERSOMNIA [None]
  - MENSTRUAL DISORDER [None]
  - PARAESTHESIA [None]
  - SINUSITIS [None]
  - SLEEP DISORDER [None]
  - THINKING ABNORMAL [None]
